FAERS Safety Report 5406631-4 (Version None)
Quarter: 2007Q3

REPORT INFORMATION
  Report Type: 
  Country: None (occurrence: None)
  Receive Date: 20070806
  Receipt Date: 20070725
  Transmission Date: 20080115
  Serious: Yes (Other)
  Sender: FDA-Public Use
  Company Number: PL-PFIZER INC-2007063118

PATIENT
  Age: 60 Year
  Sex: Female

DRUGS (3)
  1. SALAZOPYRIN EN [Suspect]
     Indication: ARTHRALGIA
  2. MULTIVITAMIN [Concomitant]
  3. TRILAC [Concomitant]

REACTIONS (7)
  - ABDOMINAL PAIN LOWER [None]
  - ABDOMINAL PAIN UPPER [None]
  - BLADDER PAIN [None]
  - DYSPNOEA [None]
  - DYSURIA [None]
  - HEPATIC PAIN [None]
  - ILL-DEFINED DISORDER [None]
